FAERS Safety Report 23234190 (Version 1)
Quarter: 2023Q4

REPORT INFORMATION
  Report Type: Spontaneous
  Country: US (occurrence: US)
  Receive Date: 20231128
  Receipt Date: 20231128
  Transmission Date: 20240110
  Serious: No
  Sender: FDA-Public Use
  Company Number: US-drreddys-SPO/USA/23/0183184

PATIENT
  Age: 20 Year
  Sex: Female

DRUGS (1)
  1. ZENATANE [Suspect]
     Active Substance: ISOTRETINOIN
     Indication: Product used for unknown indication
     Dosage: RMA ISSUE DATE: 12 APRIL 2023 12:05:00 PM, 22 MAY 2023 02:52:49 PM, 28 JUNE 2023 04:01:16 PM, 01 AUG

REACTIONS (2)
  - Gastrointestinal disorder [Unknown]
  - Illness [Unknown]
